FAERS Safety Report 8559984-2 (Version None)
Quarter: 2012Q3

REPORT INFORMATION
  Report Type: 
  Country: None (occurrence: None)
  Receive Date: 20120802
  Receipt Date: 20120727
  Transmission Date: 20120928
  Serious: Yes (Other)
  Sender: FDA-Public Use
  Company Number: US-PFIZER INC-2012170419

PATIENT
  Sex: Female
  Weight: 77.098 kg

DRUGS (5)
  1. IBUPROFEN (ADVIL) [Concomitant]
     Indication: ARTHRITIS
     Dosage: UNK (TWO TABLETS ),DAILY
  2. DETROL LA [Suspect]
     Indication: HYPERTONIC BLADDER
     Dosage: UNK
  3. VESICARE [Suspect]
     Indication: HYPERTONIC BLADDER
     Dosage: UNK
  4. SYNTHROID [Concomitant]
     Indication: HYPOTHYROIDISM
     Dosage: 137 UG, DAILY
  5. DETROL LA [Suspect]
     Indication: INCONTINENCE

REACTIONS (8)
  - DIZZINESS [None]
  - CONSTIPATION [None]
  - THINKING ABNORMAL [None]
  - DYSARTHRIA [None]
  - VISION BLURRED [None]
  - DRY MOUTH [None]
  - DYSPNOEA [None]
  - DYSPEPSIA [None]
